FAERS Safety Report 8076486-0 (Version None)
Quarter: 2012Q1

REPORT INFORMATION
  Report Type: 
  Country: None (occurrence: None)
  Receive Date: 20120125
  Receipt Date: 20120125
  Transmission Date: 20120608
  Serious: Yes (Hospitalization)
  Sender: FDA-Public Use
  Company Number: None

PATIENT
  Sex: Male
  Weight: 48.3 kg

DRUGS (6)
  1. FLUOROURACIL [Suspect]
     Dosage: 4424 MG
  2. BEVACIZUMAB (RHUMAB VEGF) [Suspect]
     Dosage: 262.5 MG
  3. VICODIN [Concomitant]
  4. ELOXATIN [Suspect]
  5. ONDANSETRON HCL [Concomitant]
  6. LEUCOVORIN CALCIUM [Suspect]
     Dosage: 632 MG

REACTIONS (12)
  - LIVER FUNCTION TEST ABNORMAL [None]
  - WHITE BLOOD CELL COUNT INCREASED [None]
  - HYPERKALAEMIA [None]
  - METABOLIC ACIDOSIS [None]
  - RENAL FAILURE ACUTE [None]
  - NEUTROPHIL COUNT INCREASED [None]
  - BACTERAEMIA [None]
  - CHOLANGITIS [None]
  - BLOOD BILIRUBIN INCREASED [None]
  - JAUNDICE CHOLESTATIC [None]
  - TREATMENT FAILURE [None]
  - SEPSIS [None]
